FAERS Safety Report 4296458-1 (Version None)
Quarter: 2004Q1

REPORT INFORMATION
  Report Type: 
  Country: None (occurrence: None)
  Receive Date: 20040126
  Receipt Date: 20030822
  Transmission Date: 20041129
  Serious: No
  Sender: FDA-Public Use
  Company Number: USA030845135

PATIENT
  Age: 55 Year
  Weight: 91 kg

DRUGS (2)
  1. STRATTERA [Suspect]
     Indication: ATTENTION DEFICIT/HYPERACTIVITY DISORDER
     Dosage: 50 MG/2 DAY
     Dates: start: 20030728
  2. ZOLOFT [Concomitant]

REACTIONS (2)
  - URINARY HESITATION [None]
  - URINE FLOW DECREASED [None]
